FAERS Safety Report 13555137 (Version 1)
Quarter: 2017Q2

REPORT INFORMATION
  Report Type: Spontaneous
  Country: DE (occurrence: DE)
  Receive Date: 20170517
  Receipt Date: 20170517
  Transmission Date: 20170830
  Serious: Yes (Hospitalization, Disabling)
  Sender: FDA-Public Use
  Company Number: DE-JNJFOC-20170508860

PATIENT
  Age: 93 Year
  Sex: Male

DRUGS (2)
  1. RISPERIDON [Suspect]
     Active Substance: RISPERIDONE
     Indication: PRODUCT USED FOR UNKNOWN INDICATION
     Route: 048
     Dates: start: 20170204, end: 20170211
  2. RAMIPRIL. [Suspect]
     Active Substance: RAMIPRIL
     Indication: PRODUCT USED FOR UNKNOWN INDICATION
     Route: 048
     Dates: start: 20170209

REACTIONS (9)
  - Skin injury [Recovered/Resolved]
  - Fall [Recovered/Resolved]
  - Asthenia [Unknown]
  - Immobile [Not Recovered/Not Resolved]
  - Urosepsis [Unknown]
  - General physical health deterioration [Not Recovered/Not Resolved]
  - Gastroenteritis [Unknown]
  - Hypokinesia [Unknown]
  - Social avoidant behaviour [Unknown]

NARRATIVE: CASE EVENT DATE: 201702
